FAERS Safety Report 6240361-4 (Version None)
Quarter: 2009Q2

REPORT INFORMATION
  Report Type: 
  Country: None (occurrence: None)
  Receive Date: 20090623
  Receipt Date: 20080825
  Transmission Date: 20091009
  Serious: No
  Sender: FDA-Public Use
  Company Number: US-ASTRAZENECA-2008UW17349

PATIENT
  Age: 81 Year
  Sex: Female
  Weight: 72.6 kg

DRUGS (2)
  1. PULMICORT RESPULES [Suspect]
     Indication: SINUS DISORDER
     Dosage: 0.5 MG/2 ML, TWICE DAILY
     Route: 055
     Dates: start: 20080804
  2. PULMICORT RESPULES [Suspect]
     Indication: NASAL POLYPS
     Dosage: 0.5 MG/2 ML, TWICE DAILY
     Route: 055
     Dates: start: 20080804

REACTIONS (2)
  - LIMB DISCOMFORT [None]
  - LUNG DISORDER [None]
